FAERS Safety Report 14991278 (Version 3)
Quarter: 2019Q1

REPORT INFORMATION
  Report Type: Spontaneous
  Country: PT (occurrence: PT)
  Receive Date: 20180608
  Receipt Date: 20190307
  Transmission Date: 20190417
  Serious: Yes (Hospitalization)
  Sender: FDA-Public Use
  Company Number: PT-MYLANLABS-2018M1038293

PATIENT
  Age: 75 Year
  Sex: Female

DRUGS (1)
  1. PREDNISONE. [Suspect]
     Active Substance: PREDNISONE
     Indication: PNEUMONIA
     Dosage: 40 MG, QD
     Route: 048

REACTIONS (7)
  - Abnormal behaviour [Recovered/Resolved]
  - Euphoric mood [Recovered/Resolved]
  - Irritability [Recovered/Resolved]
  - Jealous delusion [Recovered/Resolved]
  - Pressure of speech [Recovered/Resolved]
  - Delusion of grandeur [Recovered/Resolved]
  - Insomnia [Recovered/Resolved]
